FAERS Safety Report 8849205 (Version 1)
Quarter: 2012Q4

REPORT INFORMATION
  Report Type: Spontaneous
  Country: US (occurrence: None)
  Receive Date: 20121017
  Receipt Date: 20121017
  Transmission Date: 20130627
  Serious: Yes (Other)
  Sender: FDA-Public Use
  Company Number: DKLU1069550

PATIENT
  Age: 9 Year
  Sex: Male

DRUGS (3)
  1. SABRIL (TABLET) (SABRIL) (VIGABATRIN) (500 MG, TABLET) [Suspect]
     Indication: COMPLEX PARTIAL SEIZURES
     Route: 048
     Dates: start: 20091113
  2. LAMICTAL (LAMOTRIGINE) [Concomitant]
  3. CENITOL [Concomitant]

REACTIONS (1)
  - Lobar pneumonia [None]
